FAERS Safety Report 5154372-3 (Version None)
Quarter: 2006Q4

REPORT INFORMATION
  Report Type: 
  Country: None (occurrence: None)
  Receive Date: 20061120
  Receipt Date: 20060728
  Transmission Date: 20070319
  Serious: Yes (Other)
  Sender: FDA-Public Use
  Company Number: DE-BOEHRINGER INGELHEIM GMBH, GERMANY-2006-DE-04003GD

PATIENT
  Age: 52 Year
  Sex: Male

DRUGS (3)
  1. TIPRANAVIR + RITONAVIR CO-ADMIN [Suspect]
     Indication: HIV INFECTION
     Dosage: 1000 MG TIPRANAVIR/400 MG RITONAVIR
     Dates: start: 20050201
  2. ENFUVIRTIDE [Suspect]
     Indication: HIV INFECTION
     Dates: start: 20040201
  3. LAMIVUDINE AND ZIDOVUDINE [Concomitant]
     Indication: HIV INFECTION
     Dosage: 600 MG ZIDOVUDUNE/300 MG LAMIVUDINE
     Dates: start: 20040201

REACTIONS (5)
  - BLOOD HIV RNA INCREASED [None]
  - DRUG INTERACTION [None]
  - HEPATOTOXICITY [None]
  - SKIN REACTION [None]
  - WEIGHT DECREASED [None]
